FAERS Safety Report 15807521 (Version 3)
Quarter: 2019Q1

REPORT INFORMATION
  Report Type: Report from Study
  Country: US (occurrence: US)
  Receive Date: 20190110
  Receipt Date: 20190305
  Transmission Date: 20190417
  Serious: Yes (Hospitalization, Other)
  Sender: FDA-Public Use
  Company Number: PHEH2019US000673

PATIENT
  Sex: Male
  Weight: 145.13 kg

DRUGS (1)
  1. COSENTYX [Suspect]
     Active Substance: SECUKINUMAB
     Indication: PSORIASIS
     Dosage: 300 MG, QMO
     Route: 058
     Dates: start: 201805

REACTIONS (3)
  - Haematochezia [Not Recovered/Not Resolved]
  - Heart rate increased [Unknown]
  - Rectal haemorrhage [Unknown]
